FAERS Safety Report 5897546-6 (Version None)
Quarter: 2008Q3

REPORT INFORMATION
  Report Type: 
  Country: None (occurrence: None)
  Receive Date: 20080916
  Receipt Date: 20080522
  Transmission Date: 20090109
  Serious: Yes (Other)
  Sender: FDA-Public Use
  Company Number: S08-USA-00888-01

PATIENT
  Age: 35 Year
  Sex: Female
  Weight: 90.7194 kg

DRUGS (6)
  1. CELEXA [Suspect]
     Indication: ANXIETY
     Dosage: ORAL
     Route: 048
     Dates: start: 20010101, end: 20071216
  2. TOPAMAX [Suspect]
     Indication: MIGRAINE PROPHYLAXIS
     Dosage: 100 MG 9100 MG,ONCE A DAY) ; 50 MG (25 MG,TWICE A DAY)
     Dates: start: 20071001, end: 20080101
  3. TOPAMAX [Suspect]
     Indication: MIGRAINE PROPHYLAXIS
     Dosage: 100 MG 9100 MG,ONCE A DAY) ; 50 MG (25 MG,TWICE A DAY)
     Dates: start: 20080101, end: 20080207
  4. PREVACID (LANSOPRAZOLE) (LANSOPRAZOLE) [Concomitant]
  5. XANAX (ALPRAZOLAM) (ALPRAZOLAM) [Concomitant]
  6. KLONOPIN (CLONAZEPAM) (CLONAZEPAM) [Concomitant]

REACTIONS (2)
  - FATIGUE [None]
  - SEROTONIN SYNDROME [None]
